FAERS Safety Report 4357367-2 (Version None)
Quarter: 2004Q2

REPORT INFORMATION
  Report Type: 
  Country: None (occurrence: None)
  Receive Date: 20040513
  Receipt Date: 20040407
  Transmission Date: 20050107
  Serious: Yes (Hospitalization)
  Sender: FDA-Public Use
  Company Number: 200411445FR

PATIENT
  Age: 7 Year
  Sex: Male

DRUGS (15)
  1. CLAFORAN [Suspect]
     Indication: PULMONARY CONGESTION
     Route: 042
     Dates: start: 20040302, end: 20040318
  2. NESDONAL [Suspect]
     Route: 042
     Dates: start: 20040223, end: 20040312
  3. SECTRAL [Suspect]
     Dates: start: 20030101, end: 20040223
  4. LASIX [Suspect]
     Dates: start: 20040223, end: 20040224
  5. NARCOZEP [Suspect]
     Dates: start: 20040223, end: 20040314
  6. SOLU-MEDROL [Suspect]
     Route: 042
     Dates: start: 20040223
  7. MOPRAL [Suspect]
     Route: 048
     Dates: start: 20040223, end: 20040318
  8. FENTANYL [Suspect]
     Route: 042
     Dates: start: 20040223, end: 20040323
  9. ADALAT - SLOW RELEASE [Concomitant]
     Route: 048
     Dates: start: 20030101, end: 20040223
  10. ASPEGIC 325 [Concomitant]
     Dates: end: 20040223
  11. ENDOXAN [Concomitant]
     Dates: start: 20031212
  12. ACETAMINOPHEN [Concomitant]
     Dates: start: 20040223, end: 20040226
  13. ORBENIN CAP [Concomitant]
     Dates: start: 20040223, end: 20040226
  14. TEGELINE [Concomitant]
     Dates: start: 20040223, end: 20040228
  15. TRANDATE [Concomitant]
     Indication: HYPERTENSION
     Dates: start: 20040224

REACTIONS (14)
  - AGRANULOCYTOSIS [None]
  - APLASIA [None]
  - CANDIDIASIS [None]
  - HEPATOSPLENOMEGALY [None]
  - HISTIOCYTOSIS HAEMATOPHAGIC [None]
  - HYPERTENSION [None]
  - HYPERTRIGLYCERIDAEMIA [None]
  - HYPOCOAGULABLE STATE [None]
  - INFLAMMATION [None]
  - INTRAVENTRICULAR HAEMORRHAGE [None]
  - MIOSIS [None]
  - PANCYTOPENIA [None]
  - PULMONARY CONGESTION [None]
  - WHITE BLOOD CELL COUNT INCREASED [None]
